FAERS Safety Report 5294516-6 (Version None)
Quarter: 2007Q2

REPORT INFORMATION
  Report Type: 
  Country: None (occurrence: None)
  Receive Date: 20070406
  Receipt Date: 20060113
  Transmission Date: 20071010
  Serious: Yes (Death)
  Sender: FDA-Public Use
  Company Number: 20052469

PATIENT
  Sex: Male

DRUGS (1)
  1. LIORESAL [Suspect]
     Indication: MUSCLE SPASTICITY
     Dosage: DAILY, INTRATHECAL
     Route: 037

REACTIONS (9)
  - ANOXIC ENCEPHALOPATHY [None]
  - APNOEIC ATTACK [None]
  - ASTHENIA [None]
  - DRUG TOXICITY [None]
  - DRUG WITHDRAWAL SYNDROME [None]
  - OVERDOSE [None]
  - PNEUMONIA [None]
  - SEDATION [None]
  - STATUS EPILEPTICUS [None]
